FAERS Safety Report 24708126 (Version 3)
Quarter: 2025Q3

REPORT INFORMATION
  Report Type: Report from Study
  Country: US (occurrence: US)
  Receive Date: 20241206
  Receipt Date: 20250923
  Transmission Date: 20251021
  Serious: Yes (Other)
  Sender: ABBVIE
  Company Number: US-ABBVIE-5850873

PATIENT
  Age: 82 Year
  Sex: Female

DRUGS (2)
  1. HUMIRA [Suspect]
     Active Substance: ADALIMUMAB
     Indication: Product used for unknown indication
     Route: 058
     Dates: start: 20161102, end: 20240916
  2. SKYRIZI [Suspect]
     Active Substance: RISANKIZUMAB-RZAA
     Indication: Psoriasis
     Route: 058
     Dates: start: 20231020

REACTIONS (12)
  - Neoplasm malignant [Recovered/Resolved]
  - Sciatic nerve neuropathy [Recovering/Resolving]
  - Psoriasis [Recovered/Resolved]
  - Otorrhoea [Unknown]
  - Fluid retention [Not Recovered/Not Resolved]
  - Ear pruritus [Unknown]
  - Drug ineffective [Unknown]
  - Skin weeping [Unknown]
  - Back pain [Unknown]
  - Back disorder [Unknown]
  - Psoriasis [Recovering/Resolving]
  - Scar [Not Recovered/Not Resolved]

NARRATIVE: CASE EVENT DATE: 20240101
